FAERS Safety Report 4301438-3 (Version None)
Quarter: 2004Q1

REPORT INFORMATION
  Report Type: 
  Country: None (occurrence: None)
  Receive Date: 20040220
  Receipt Date: 20040220
  Transmission Date: 20041129
  Serious: Yes (Life-Threatening)
  Sender: FDA-Public Use
  Company Number: None

PATIENT
  Age: 71 Year
  Sex: Male
  Weight: 113.3993 kg

DRUGS (3)
  1. LANTUS [Suspect]
     Indication: DIABETES MELLITUS
     Dosage: 35 UNITS
     Dates: start: 20030701
  2. LANTUS [Suspect]
     Indication: DIABETES MELLITUS
     Dosage: 35 UNITS
     Dates: start: 20040101
  3. AVANDIA [Suspect]

REACTIONS (9)
  - ARTHRALGIA [None]
  - ASTHENIA [None]
  - FALL [None]
  - INFLUENZA LIKE ILLNESS [None]
  - MYALGIA [None]
  - PRURITUS [None]
  - SWELLING [None]
  - VISION BLURRED [None]
  - WHEEZING [None]
